FAERS Safety Report 23967321 (Version 1)
Quarter: 2024Q2

REPORT INFORMATION
  Report Type: Spontaneous
  Country: US (occurrence: US)
  Receive Date: 20240612
  Receipt Date: 20240612
  Transmission Date: 20240715
  Serious: No
  Sender: FDA-Public Use
  Company Number: US-Calliditas-2024CAL00923

PATIENT
  Age: 44 Year
  Sex: Female
  Weight: 66.9 kg

DRUGS (1)
  1. TARPEYO [Suspect]
     Active Substance: BUDESONIDE
     Indication: IgA nephropathy
     Route: 048
     Dates: start: 20240412

REACTIONS (4)
  - Fatigue [Recovering/Resolving]
  - Hypertension [Unknown]
  - Abdominal pain upper [Unknown]
  - Weight increased [Unknown]
